FAERS Safety Report 20374327 (Version 1)
Quarter: 2022Q1

REPORT INFORMATION
  Report Type: Spontaneous
  Country: CA (occurrence: CA)
  Receive Date: 20220125
  Receipt Date: 20220125
  Transmission Date: 20220423
  Serious: Yes (Other)
  Sender: FDA-Public Use
  Company Number: CA-TEVA-2022-CA-1999972

PATIENT
  Age: 4 Year
  Sex: Male
  Weight: 19 kg

DRUGS (26)
  1. FLUDARABINE [Suspect]
     Active Substance: FLUDARABINE PHOSPHATE
     Indication: Transplant
     Route: 041
  2. ALEMTUZUMAB [Suspect]
     Active Substance: ALEMTUZUMAB
     Indication: Transplant
     Route: 042
  3. PENTAMIDINE [Concomitant]
     Active Substance: PENTAMIDINE
  4. ACYCLOVIR [Concomitant]
     Active Substance: ACYCLOVIR
  5. ALTEPLASE [Concomitant]
     Active Substance: ALTEPLASE
  6. AMLODIPINE [Concomitant]
     Active Substance: AMLODIPINE BESYLATE
     Route: 065
  7. CALCIUM\VITAMIN D [Concomitant]
     Active Substance: CALCIUM\VITAMIN D
  8. CEFTAZIDIME [Concomitant]
     Active Substance: CEFTAZIDIME
  9. CICLESONIDE [Concomitant]
     Active Substance: CICLESONIDE
  10. CYCLOSPORINE [Concomitant]
     Active Substance: CYCLOSPORINE
     Route: 065
  11. FAMOTIDINE [Concomitant]
     Active Substance: FAMOTIDINE
  12. FLUCONAZOLE [Concomitant]
     Active Substance: FLUCONAZOLE
  13. FUROSEMIDE [Concomitant]
     Active Substance: FUROSEMIDE
  14. HYDROXYZINE [Concomitant]
     Active Substance: HYDROXYZINE HYDROCHLORIDE
  15. MAGNESIUM [Concomitant]
     Active Substance: MAGNESIUM
  16. MELATONIN [Concomitant]
     Active Substance: MELATONIN
  17. METHYLPREDNISOLONE [Concomitant]
     Active Substance: METHYLPREDNISOLONE
  18. MYCAMINE [Concomitant]
     Active Substance: MICAFUNGIN SODIUM
  19. MYCOPHENOLATE MOFETIL [Concomitant]
     Active Substance: MYCOPHENOLATE MOFETIL
  20. ONDANSETRON [Concomitant]
     Active Substance: ONDANSETRON
  21. PIPERACILLIN SODIUM\TAZOBACTAM SODIUM [Concomitant]
     Active Substance: PIPERACILLIN SODIUM\TAZOBACTAM SODIUM
  22. POLYETHYLENE GLYCOL [Concomitant]
     Active Substance: POLYETHYLENE GLYCOL
  23. PREDNISONE [Concomitant]
     Active Substance: PREDNISONE
  24. URSODIOL [Concomitant]
     Active Substance: URSODIOL
  25. VALACYCLOVIR [Concomitant]
     Active Substance: VALACYCLOVIR HYDROCHLORIDE
  26. VANCOMYCIN [Concomitant]
     Active Substance: VANCOMYCIN

REACTIONS (1)
  - Aplasia pure red cell [Recovered/Resolved]
